FAERS Safety Report 11475624 (Version 1)
Quarter: 2015Q3

REPORT INFORMATION
  Report Type: Spontaneous
  Country: US (occurrence: US)
  Receive Date: 20150909
  Receipt Date: 20150909
  Transmission Date: 20151125
  Serious: No
  Sender: FDA-Public Use
  Company Number: US-009507513-1509USA002876

PATIENT
  Age: 38 Year
  Sex: Female

DRUGS (3)
  1. CELESTONE [Suspect]
     Active Substance: BETAMETHASONE
     Indication: MATERNAL THERAPY TO ENHANCE FOETAL LUNG MATURITY
     Route: 048
  2. MAGNESIUM (UNSPECIFIED) [Concomitant]
     Active Substance: MAGNESIUM
     Indication: TOCOLYSIS
     Route: 042
  3. PROGESTERONE. [Concomitant]
     Active Substance: PROGESTERONE
     Indication: TOCOLYSIS
     Route: 042

REACTIONS (1)
  - Exposure during pregnancy [Recovered/Resolved]
